FAERS Safety Report 16618720 (Version 2)
Quarter: 2019Q3

REPORT INFORMATION
  Report Type: Spontaneous
  Country: PR (occurrence: PR)
  Receive Date: 20190723
  Receipt Date: 20190801
  Transmission Date: 20191004
  Serious: No
  Sender: FDA-Public Use
  Company Number: PR-PFIZER INC-2019311712

PATIENT
  Age: 57 Year
  Sex: Female
  Weight: 82 kg

DRUGS (2)
  1. LETROZOLE. [Concomitant]
     Active Substance: LETROZOLE
     Dosage: UNK
  2. IBRANCE [Suspect]
     Active Substance: PALBOCICLIB
     Indication: METASTASES TO BONE
     Dosage: 100 MG, CYCLIC (DAILY FOR 21 DAYS AND 7 DAYS OFF)
     Route: 048
     Dates: start: 20181217

REACTIONS (1)
  - Infection [Unknown]
